FAERS Safety Report 5051788-0 (Version None)
Quarter: 2006Q3

REPORT INFORMATION
  Report Type: 
  Country: None (occurrence: None)
  Receive Date: 20060713
  Receipt Date: 20060713
  Transmission Date: 20061208
  Serious: Yes (Other)
  Sender: FDA-Public Use
  Company Number: None

PATIENT
  Age: 54 Year
  Sex: Female
  Weight: 85.3 kg

DRUGS (1)
  1. HIBICLENS [Suspect]

REACTIONS (1)
  - SKIN DISCOLOURATION [None]
